FAERS Safety Report 24359194 (Version 1)
Quarter: 2024Q3

REPORT INFORMATION
  Report Type: Spontaneous
  Country: CA (occurrence: CA)
  Receive Date: 20240924
  Receipt Date: 20240924
  Transmission Date: 20241017
  Serious: No
  Sender: Unknown Manufacturer
  Company Number: CA-ROCHE-10000037574

PATIENT

DRUGS (1)
  1. PRALSETINIB [Suspect]
     Active Substance: PRALSETINIB
     Indication: Product used for unknown indication
     Dosage: 200 MILLIGRAM, QD
     Route: 048

REACTIONS (1)
  - Muscular weakness [Unknown]
